FAERS Safety Report 5766519-6 (Version None)
Quarter: 2008Q2

REPORT INFORMATION
  Report Type: 
  Country: None (occurrence: None)
  Receive Date: 20080612
  Receipt Date: 20080603
  Transmission Date: 20081010
  Serious: Yes (Other)
  Sender: FDA-Public Use
  Company Number: GB-ROCHE-568244

PATIENT
  Sex: Female
  Weight: 97.7 kg

DRUGS (6)
  1. ORLISTAT [Suspect]
     Indication: OBESITY
     Route: 048
     Dates: start: 20080326, end: 20080515
  2. CITALOPRAM HYDROBROMIDE [Concomitant]
     Indication: DEPRESSION
     Route: 048
  3. ACETAMINOPHEN [Concomitant]
     Indication: PAIN
     Route: 048
  4. CYCLIZINE [Concomitant]
     Indication: NAUSEA
     Route: 048
  5. DICLOFLEX [Concomitant]
     Indication: PAIN
     Dosage: ENTERED AS DICOFLEX.
     Route: 048
  6. 1 CONCOMITANT DRUG [Concomitant]
     Dosage: ENTERED AS ZACANCEPHALON.
     Route: 061

REACTIONS (1)
  - BREAST CANCER [None]
